FAERS Safety Report 20404470 (Version 1)
Quarter: 2022Q1

REPORT INFORMATION
  Report Type: Spontaneous
  Country: US (occurrence: None)
  Receive Date: 20220128
  Receipt Date: 20220128
  Transmission Date: 20220423
  Serious: Yes (Hospitalization)
  Sender: FDA-Public Use
  Company Number: None

PATIENT
  Age: 64 Year
  Sex: Female

DRUGS (1)
  1. SUNITINIB [Suspect]
     Active Substance: SUNITINIB
     Indication: Renal cancer
     Dosage: FREQUENCY : DAILY;?
     Route: 048
     Dates: start: 2021

REACTIONS (9)
  - Constipation [None]
  - Abdominal discomfort [None]
  - Constipation [None]
  - Fatigue [None]
  - Pain [None]
  - Asthenia [None]
  - Blood urine present [None]
  - Haematochezia [None]
  - Therapy cessation [None]

NARRATIVE: CASE EVENT DATE: 20210901
